APPROVED DRUG PRODUCT: OSPHENA
Active Ingredient: OSPEMIFENE
Strength: 60MG
Dosage Form/Route: TABLET;ORAL
Application: N203505 | Product #001
Applicant: DUCHESNAY INC
Approved: Feb 26, 2013 | RLD: Yes | RS: Yes | Type: RX

PATENTS:
Patent 8236861 | Expires: Aug 11, 2026
Patent 8236861 | Expires: Aug 11, 2026
Patent 8236861 | Expires: Aug 11, 2026
Patent 8642079 | Expires: Jul 9, 2028